FAERS Safety Report 17261542 (Version 2)
Quarter: 2022Q4

REPORT INFORMATION
  Report Type: Report from Study
  Country: DE (occurrence: DE)
  Receive Date: 20200113
  Receipt Date: 20221003
  Transmission Date: 20230113
  Serious: Yes (Other)
  Sender: FDA-Public Use
  Company Number: DE-AMGEN-DEUNI2018181916

PATIENT
  Age: 56 Year
  Sex: Female
  Weight: 56 kg

DRUGS (3)
  1. TRASTUZUMAB [Suspect]
     Active Substance: TRASTUZUMAB
     Indication: Breast cancer
     Dosage: 336 MILLIGRAM/ ON 21/AUG/2018, SHE RECEIVED LAST ADMINISTRATION PRIOR TO ADVERSE EVENT.
     Route: 042
     Dates: start: 20180619, end: 20180731
  2. DOCETAXEL [Suspect]
     Active Substance: DOCETAXEL
     Indication: Breast cancer
     Dosage: 152 MG, UNK/ LAST ADMINISTRATION OF DOCETAXEL PRIOR TO THE EVENT WAS ON 21/AUG/2018
     Route: 065
     Dates: start: 20180619
  3. PERTUZUMAB [Suspect]
     Active Substance: PERTUZUMAB
     Indication: Breast cancer
     Dosage: 420 MG, UNK/ LAST ADMINISTRATION OF PERTUZUMAB PRIOR TO THE EVENT WAS ON 21/AUG/2018
     Route: 065
     Dates: start: 20180619

REACTIONS (3)
  - Soft tissue infection [Recovering/Resolving]
  - Mastitis [Not Recovered/Not Resolved]
  - Oedema peripheral [Recovered/Resolved]

NARRATIVE: CASE EVENT DATE: 20180723
